FAERS Safety Report 18602190 (Version 3)
Quarter: 2020Q4

REPORT INFORMATION
  Report Type: Spontaneous
  Country: JP (occurrence: JP)
  Receive Date: 20201210
  Receipt Date: 20201228
  Transmission Date: 20210114
  Serious: Yes (Death, Life-Threatening, Hospitalization, Other)
  Sender: FDA-Public Use
  Company Number: JP-009507513-2010JPN002735J

PATIENT
  Age: 65 Year
  Sex: Female
  Weight: 40 kg

DRUGS (10)
  1. SENNA [Concomitant]
     Active Substance: SENNA LEAF\SENNOSIDES\SENNOSIDES A AND B
     Dosage: 2 DOSAGE FORM, QD
     Route: 048
     Dates: start: 20201012
  2. LOXOPROFEN [Concomitant]
     Active Substance: LOXOPROFEN
     Dosage: 1 DOSAGE FORM, TID
     Route: 048
     Dates: start: 20201012
  3. REBAMIPIDE [Concomitant]
     Active Substance: REBAMIPIDE
     Dosage: 1 DOSAGE FORM, TID
     Route: 048
     Dates: start: 20201012
  4. KEYTRUDA [Suspect]
     Active Substance: PEMBROLIZUMAB
     Indication: ENDOMETRIAL ADENOCARCINOMA
     Dosage: 200 MILLIGRAM, Q3W
     Route: 041
     Dates: start: 20201012, end: 20201012
  5. TRAMAL [Concomitant]
     Active Substance: TRAMADOL
     Dosage: 1 DOSAGE FORM, QID
     Route: 048
     Dates: start: 20201012
  6. ALDACTONE A [Concomitant]
     Active Substance: SPIRONOLACTONE
     Dosage: 2 DOSAGE FORM, QD
     Route: 048
     Dates: start: 20201012
  7. XARELTO [Concomitant]
     Active Substance: RIVAROXABAN
     Dosage: 1 DOSAGE FORM, QD
     Route: 048
     Dates: start: 20201012
  8. LYRICA [Concomitant]
     Active Substance: PREGABALIN
     Dosage: 1 DOSAGE FORM, QD
     Route: 048
     Dates: start: 20201012
  9. LAC-B [Concomitant]
     Active Substance: BIFIDOBACTERIUM SPP.
     Dosage: 1 DOSAGE FORM, TID
     Route: 048
     Dates: start: 20201012
  10. FUROSEMIDE. [Concomitant]
     Active Substance: FUROSEMIDE
     Dosage: 1 DOSAGE FORM, QD
     Route: 048
     Dates: start: 20201012

REACTIONS (3)
  - White blood cell count increased [Fatal]
  - Anaemia [Fatal]
  - Myelodysplastic syndrome [Fatal]

NARRATIVE: CASE EVENT DATE: 20201026
